FAERS Safety Report 17568970 (Version 2)
Quarter: 2020Q1

REPORT INFORMATION
  Report Type: Report from Study
  Country: BR (occurrence: BR)
  Receive Date: 20200321
  Receipt Date: 20200324
  Transmission Date: 20200409
  Serious: Yes (Hospitalization, Other)
  Sender: FDA-Public Use
  Company Number: BR-UCBSA-2020010699

PATIENT
  Sex: Male
  Weight: 100 kg

DRUGS (8)
  1. TOPIRAMATO [Concomitant]
     Active Substance: TOPIRAMATE
     Indication: SEIZURE
     Route: 048
  2. LEVETIRACETAM. [Suspect]
     Active Substance: LEVETIRACETAM
     Indication: EPILEPSY
     Dosage: 500 MG
     Route: 048
  3. RIVOTRIL [Concomitant]
     Active Substance: CLONAZEPAM
     Indication: SEIZURE
  4. DEPAKOTE [Concomitant]
     Active Substance: DIVALPROEX SODIUM
     Indication: SEIZURE
     Route: 048
  5. LEVETIRACETAM. [Suspect]
     Active Substance: LEVETIRACETAM
     Dosage: 500 MG, 1 AND HALF TABLET AM, 1 TABLET AFTERNOON AND 1 AND HALF TABLET EVENING
     Route: 048
     Dates: end: 20200302
  6. DIAZEPAM. [Concomitant]
     Active Substance: DIAZEPAM
     Indication: SEIZURE
  7. LEVETIRACETAM. [Suspect]
     Active Substance: LEVETIRACETAM
     Dosage: INCREASED DOSE (500MG 3X A DAY OR 2X A DAY)
     Route: 048
  8. LEVETIRACETAM. [Suspect]
     Active Substance: LEVETIRACETAM
     Dosage: 2 TABLET AM, 2 TABLET AFTERNOON AND 1.5 TABLET AT PM
     Route: 048
     Dates: start: 20200302

REACTIONS (7)
  - Off label use [Unknown]
  - Bronchitis [Recovered/Resolved]
  - Epilepsy [Recovering/Resolving]
  - Wrong technique in product usage process [Unknown]
  - Nasopharyngitis [Recovered/Resolved]
  - Autism spectrum disorder [Not Recovered/Not Resolved]
  - Mydriasis [Recovering/Resolving]

NARRATIVE: CASE EVENT DATE: 2002
